FAERS Safety Report 19646897 (Version 4)
Quarter: 2022Q3

REPORT INFORMATION
  Report Type: Spontaneous
  Country: CA (occurrence: CA)
  Receive Date: 20210802
  Receipt Date: 20220912
  Transmission Date: 20221027
  Serious: Yes (Other)
  Sender: FDA-Public Use
  Company Number: CA-PFIZER INC-2020402911

PATIENT
  Age: 75 Year
  Sex: Female

DRUGS (10)
  1. RUXIENCE [Suspect]
     Active Substance: RITUXIMAB-PVVR
     Indication: Central nervous system vasculitis
     Dosage: 1000 MG ON DAY 1 AND DAY 14
     Route: 042
     Dates: start: 20201214, end: 20201214
  2. RUXIENCE [Suspect]
     Active Substance: RITUXIMAB-PVVR
     Indication: Central nervous system vasculitis
     Dosage: 1000 MG ON DAY 1 AND DAY 14
     Route: 042
     Dates: start: 20201228, end: 20201228
  3. RUXIENCE [Suspect]
     Active Substance: RITUXIMAB-PVVR
     Dosage: 1000 MG, (RE TREATMENT: ON DAY 1 AND DAY 14)
     Route: 042
     Dates: start: 20210705, end: 20210705
  4. RUXIENCE [Suspect]
     Active Substance: RITUXIMAB-PVVR
     Dosage: 1000 MG, (RE TREATMENT: ON DAY 1 AND DAY 14)
     Route: 042
     Dates: start: 20210726, end: 20210726
  5. RUXIENCE [Suspect]
     Active Substance: RITUXIMAB-PVVR
     Dosage: 1000 MG, (RE-TREATMENT: DAY 1, DAY 15 AND Q (EVERY) 6 MONTHS.)
     Route: 042
     Dates: start: 20220207
  6. RUXIENCE [Suspect]
     Active Substance: RITUXIMAB-PVVR
     Dosage: 1000 MG, (RE-TREATMENT: DAY 1, DAY 15 AND Q (EVERY) 6 MONTHS.)
     Route: 042
     Dates: start: 20220906
  7. CELLCEPT [Concomitant]
     Active Substance: MYCOPHENOLATE MOFETIL
     Dosage: UNK
  8. MYCOPHENOLATE MOFETIL [Concomitant]
     Active Substance: MYCOPHENOLATE MOFETIL
     Dosage: UNK
  9. PREDNISONE [Concomitant]
     Active Substance: PREDNISONE
     Dosage: 15 MG, DAILY
  10. SYNTHROID [Concomitant]
     Active Substance: LEVOTHYROXINE SODIUM
     Dosage: UNK

REACTIONS (6)
  - Syncope [Unknown]
  - Pruritus [Recovered/Resolved]
  - Rash [Recovered/Resolved]
  - Inappropriate schedule of product administration [Unknown]
  - Off label use [Unknown]
  - Contusion [Not Recovered/Not Resolved]

NARRATIVE: CASE EVENT DATE: 20201214
